FAERS Safety Report 6470554-2 (Version None)
Quarter: 2009Q4

REPORT INFORMATION
  Report Type: 
  Country: None (occurrence: None)
  Receive Date: 20091203
  Receipt Date: 20091123
  Transmission Date: 20100525
  Serious: Yes (Hospitalization)
  Sender: FDA-Public Use
  Company Number: DK-PFIZER INC-2009301895

PATIENT

DRUGS (2)
  1. IRINOTECAN HCL [Suspect]
     Indication: COLORECTAL CANCER
     Dosage: UNK
     Dates: start: 20091027
  2. PANITUMUMAB [Suspect]
     Indication: COLORECTAL CANCER
     Dosage: UNK
     Dates: start: 20091027

REACTIONS (4)
  - BLOOD ALKALINE PHOSPHATASE INCREASED [None]
  - DILATATION INTRAHEPATIC DUCT ACQUIRED [None]
  - GASTROINTESTINAL HAEMORRHAGE [None]
  - INTERNATIONAL NORMALISED RATIO INCREASED [None]
